FAERS Safety Report 4658473-5 (Version None)
Quarter: 2005Q2

REPORT INFORMATION
  Report Type: 
  Country: None (occurrence: None)
  Receive Date: 20050511
  Receipt Date: 20050426
  Transmission Date: 20051028
  Serious: Yes (Hospitalization)
  Sender: FDA-Public Use
  Company Number: JP-GLAXOSMITHKLINE-B0379157A

PATIENT
  Age: 78 Year
  Sex: Male
  Weight: 43 kg

DRUGS (4)
  1. VALTREX [Suspect]
     Indication: HERPES ZOSTER
     Dosage: 500MG TWICE PER DAY
     Route: 048
     Dates: start: 20050411, end: 20050411
  2. NIVADIL [Concomitant]
     Indication: HYPERTENSION
     Dosage: 2MG TWICE PER DAY
     Route: 048
  3. UNSPECIFIED MEDICATIONS [Concomitant]
     Dosage: 40MG PER DAY
     Route: 065
  4. MICARDIS [Concomitant]
     Indication: HYPERTENSION
     Dosage: 40MG PER DAY
     Route: 048

REACTIONS (2)
  - DIFFICULTY IN WALKING [None]
  - DYSARTHRIA [None]
